FAERS Safety Report 5720696-1 (Version None)
Quarter: 2008Q2

REPORT INFORMATION
  Report Type: 
  Country: None (occurrence: None)
  Receive Date: 20080429
  Receipt Date: 20080331
  Transmission Date: 20081010
  Serious: Yes (Other)
  Sender: FDA-Public Use
  Company Number: FR-JNJFOC-20080406741

PATIENT
  Age: 45 Year
  Sex: Female

DRUGS (3)
  1. RISPERDAL [Suspect]
     Indication: DRUG USE FOR UNKNOWN INDICATION
     Route: 048
  2. SEROPRAM [Concomitant]
  3. RIVOTRIL [Concomitant]

REACTIONS (2)
  - AMENORRHOEA [None]
  - PITUITARY TUMOUR BENIGN [None]
